FAERS Safety Report 10485200 (Version 1)
Quarter: 2014Q3

REPORT INFORMATION
  Report Type: Spontaneous
  Country: US (occurrence: US)
  Receive Date: 20140930
  Receipt Date: 20140930
  Transmission Date: 20150326
  Serious: Yes (Other)
  Sender: FDA-Public Use
  Company Number: US-ELI_LILLY_AND_COMPANY-US201409008159

PATIENT
  Sex: Male

DRUGS (5)
  1. HUMULIN 70/30 [Suspect]
     Active Substance: INSULIN HUMAN
     Indication: TYPE 2 DIABETES MELLITUS
     Dosage: 35 U, EACH MORNING
     Route: 065
     Dates: start: 2008, end: 2009
  2. HUMULIN 70/30 [Suspect]
     Active Substance: INSULIN HUMAN
     Dosage: 18 U, EACH EVENING
     Route: 065
     Dates: start: 2008, end: 2009
  3. ZANTAC [Concomitant]
     Active Substance: RANITIDINE HYDROCHLORIDE
     Route: 065
  4. INSULIN HUMAN [Suspect]
     Active Substance: INSULIN HUMAN
     Indication: TYPE 2 DIABETES MELLITUS
     Dosage: UNK, PRN
     Route: 065
     Dates: start: 2008, end: 2009
  5. SIMVASTATIN. [Concomitant]
     Active Substance: SIMVASTATIN
     Route: 065

REACTIONS (3)
  - Cardiac flutter [Unknown]
  - Myocardial infarction [Unknown]
  - Headache [Unknown]
